FAERS Safety Report 16047484 (Version 1)
Quarter: 2019Q1

REPORT INFORMATION
  Report Type: Report from Study
  Country: JP (occurrence: FR)
  Receive Date: 20190307
  Receipt Date: 20190307
  Transmission Date: 20190418
  Serious: Yes (Hospitalization, Other)
  Sender: FDA-Public Use
  Company Number: JP-BIOCODEX SA-201801614

PATIENT
  Age: 13 Year
  Sex: Male

DRUGS (26)
  1. PHENOBAL [Suspect]
     Active Substance: PHENOBARBITAL
     Route: 048
     Dates: start: 20170201, end: 20170213
  2. SODIUM VALPROATE [Concomitant]
     Active Substance: VALPROATE SODIUM
     Indication: SEVERE MYOCLONIC EPILEPSY OF INFANCY
     Route: 048
     Dates: start: 20161214, end: 20170428
  3. ZONISAMIDE. [Concomitant]
     Active Substance: ZONISAMIDE
     Indication: SEVERE MYOCLONIC EPILEPSY OF INFANCY
     Route: 048
     Dates: start: 20161214, end: 20171018
  4. DIACOMIT [Suspect]
     Active Substance: STIRIPENTOL
     Route: 048
     Dates: start: 20170201, end: 20170204
  5. MYSTAN [Suspect]
     Active Substance: CLOBAZAM
     Dosage: 42 MG, QD
     Route: 048
     Dates: start: 20171116
  6. PHENOBAL [Suspect]
     Active Substance: PHENOBARBITAL
     Route: 048
     Dates: start: 20170110, end: 20170131
  7. DIACOMIT [Suspect]
     Active Substance: STIRIPENTOL
     Route: 048
     Dates: start: 20170315, end: 20170331
  8. DIACOMIT [Suspect]
     Active Substance: STIRIPENTOL
     Dosage: 250 MG, QD
     Route: 048
     Dates: start: 20170421, end: 20170428
  9. POTASSIUM BROMIDE [Concomitant]
     Active Substance: POTASSIUM BROMIDE
     Dosage: 1599 MG, QD
     Route: 048
     Dates: start: 20170921
  10. DIACOMIT [Suspect]
     Active Substance: STIRIPENTOL
     Indication: SEVERE MYOCLONIC EPILEPSY OF INFANCY
     Route: 048
     Dates: start: 20170113, end: 20170124
  11. MYSTAN [Suspect]
     Active Substance: CLOBAZAM
     Route: 048
     Dates: start: 20170214, end: 20170419
  12. MYSTAN [Suspect]
     Active Substance: CLOBAZAM
     Dosage: 37 MG, QD
     Route: 048
     Dates: start: 20170420, end: 20170621
  13. DIACOMIT [Suspect]
     Active Substance: STIRIPENTOL
     Route: 048
     Dates: start: 20170407, end: 20170420
  14. MYSTAN [Suspect]
     Active Substance: CLOBAZAM
     Route: 048
     Dates: start: 20170622, end: 20171115
  15. ZONISAMIDE. [Concomitant]
     Active Substance: ZONISAMIDE
     Route: 048
     Dates: start: 20171214, end: 20171227
  16. POTASSIUM BROMIDE [Concomitant]
     Active Substance: POTASSIUM BROMIDE
     Indication: SEVERE MYOCLONIC EPILEPSY OF INFANCY
     Route: 048
     Dates: start: 20161214, end: 20170920
  17. DIACOMIT [Suspect]
     Active Substance: STIRIPENTOL
     Route: 048
     Dates: start: 20170205, end: 20170214
  18. DIACOMIT [Suspect]
     Active Substance: STIRIPENTOL
     Route: 048
     Dates: start: 20170215, end: 20170314
  19. DIACOMIT [Suspect]
     Active Substance: STIRIPENTOL
     Route: 048
     Dates: start: 20170401, end: 20170406
  20. PHENOBAL [Suspect]
     Active Substance: PHENOBARBITAL
     Indication: SEVERE MYOCLONIC EPILEPSY OF INFANCY
     Route: 048
     Dates: start: 20161214, end: 20170109
  21. ZONISAMIDE. [Concomitant]
     Active Substance: ZONISAMIDE
     Route: 048
     Dates: start: 20171019, end: 20171213
  22. PHENOBAL [Suspect]
     Active Substance: PHENOBARBITAL
     Route: 048
     Dates: start: 20170214, end: 20170313
  23. DIACOMIT [Suspect]
     Active Substance: STIRIPENTOL
     Dosage: 750 MG, QD
     Route: 048
     Dates: start: 20170125, end: 20170131
  24. MYSTAN [Suspect]
     Active Substance: CLOBAZAM
     Indication: SEVERE MYOCLONIC EPILEPSY OF INFANCY
     Route: 048
     Dates: start: 20161214, end: 20170213
  25. PHENOBAL [Suspect]
     Active Substance: PHENOBARBITAL
     Route: 048
     Dates: start: 20170314
  26. ZONISAMIDE. [Concomitant]
     Active Substance: ZONISAMIDE
     Dosage: 145 MG, QD
     Route: 048
     Dates: start: 20171228

REACTIONS (6)
  - Somnolence [Recovering/Resolving]
  - Muscular weakness [Recovered/Resolved]
  - Decreased appetite [Recovered/Resolved]
  - Affect lability [Recovered/Resolved]
  - Muscular weakness [Recovered/Resolved]
  - Aggression [Recovering/Resolving]

NARRATIVE: CASE EVENT DATE: 20170120
